FAERS Safety Report 11080074 (Version 2)
Quarter: 2015Q4

REPORT INFORMATION
  Report Type: Spontaneous
  Country: US (occurrence: US)
  Receive Date: 20150430
  Receipt Date: 20151106
  Transmission Date: 20160304
  Serious: Yes (Hospitalization)
  Sender: FDA-Public Use
  Company Number: US-CELGENEUS-USA-2015045815

PATIENT
  Age: 67 Year
  Sex: Female

DRUGS (25)
  1. VITAMIN D3 [Concomitant]
     Active Substance: CHOLECALCIFEROL
     Indication: PRODUCT USED FOR UNKNOWN INDICATION
     Route: 048
     Dates: start: 2011
  2. NITROFURANTOIN. [Concomitant]
     Active Substance: NITROFURANTOIN
     Indication: URINARY TRACT INFECTION
     Route: 048
     Dates: start: 20141007, end: 20141016
  3. KEFLEX [Concomitant]
     Active Substance: CEPHALEXIN
     Indication: PYREXIA
     Route: 048
  4. BACITRACIN. [Concomitant]
     Active Substance: BACITRACIN
     Indication: INFECTION PROPHYLAXIS
     Dosage: 800
     Route: 061
     Dates: start: 20141015, end: 20141015
  5. ACETAMINOPHEN. [Concomitant]
     Active Substance: ACETAMINOPHEN
     Indication: HEADACHE
     Route: 065
  6. CALCIUM + VITAMIN D AND K [Concomitant]
     Indication: PRODUCT USED FOR UNKNOWN INDICATION
     Route: 065
  7. DENOSUMAB [Concomitant]
     Active Substance: DENOSUMAB
     Indication: PROPHYLAXIS
     Dosage: 5 MILLIGRAM
     Route: 058
     Dates: start: 20140910
  8. ALBUTEROL. [Concomitant]
     Active Substance: ALBUTEROL
     Indication: DYSPNOEA
     Dosage: 4.5 MILLIGRAM
     Route: 048
     Dates: end: 20141107
  9. CICLOSPORIN [Concomitant]
     Active Substance: CYCLOSPORINE
     Indication: DRY EYE
     Route: 047
  10. ADVAIR HFA [Concomitant]
     Active Substance: FLUTICASONE PROPIONATE\SALMETEROL XINAFOATE
     Indication: ASTHMA
     Dosage: 400 MILLIGRAM
     Route: 065
     Dates: start: 20140114
  11. HYCODAN [Concomitant]
     Active Substance: HOMATROPINE METHYLBROMIDE\HYDROCODONE BITARTRATE
     Indication: COUGH
     Route: 065
     Dates: end: 20141215
  12. INFLUENZA VIRUS VACCINE [Concomitant]
     Active Substance: INFLUENZA VIRUS VACCINE
     Indication: INFLUENZA
     Route: 030
     Dates: start: 20141010, end: 20141010
  13. ACETAMINOPHEN. [Concomitant]
     Active Substance: ACETAMINOPHEN
     Indication: PYREXIA
  14. MONTELUKAST [Concomitant]
     Active Substance: MONTELUKAST SODIUM
     Indication: DYSPNOEA
     Dosage: 1750 MILLIGRAM
     Route: 048
  15. ABRAXANE [Suspect]
     Active Substance: PACLITAXEL
     Indication: NEOPLASM
     Dosage: 10 MILLIGRAM
     Route: 041
     Dates: start: 20141003
  16. BIMATOPROST. [Concomitant]
     Active Substance: BIMATOPROST
     Indication: GLAUCOMA
     Dosage: 1
     Route: 047
     Dates: start: 2009
  17. ZOLPIDEM [Concomitant]
     Active Substance: ZOLPIDEM\ZOLPIDEM TARTRATE
     Indication: PRODUCT USED FOR UNKNOWN INDICATION
     Route: 065
     Dates: start: 20140728
  18. ATEZOLIZUMAB [Suspect]
     Active Substance: ATEZOLIZUMAB
     Indication: NEOPLASM
     Route: 041
     Dates: start: 20141017
  19. ACYLOVIR [Concomitant]
     Indication: HERPES SIMPLEX
     Dosage: 10 MILLILITER
     Route: 048
     Dates: start: 20141102, end: 20141110
  20. MORPHINE [Concomitant]
     Active Substance: MORPHINE
     Indication: PRODUCT USED FOR UNKNOWN INDICATION
     Dosage: .5 MILLILITER
     Route: 065
  21. SODIUM CHLORIDE. [Concomitant]
     Active Substance: SODIUM CHLORIDE
     Indication: PRODUCT USED FOR UNKNOWN INDICATION
     Dosage: 500 MILLIGRAM
     Route: 065
     Dates: start: 20141003, end: 20150508
  22. LIDOCAINE. [Concomitant]
     Active Substance: LIDOCAINE
     Indication: ANAESTHESIA
     Dosage: 500 MICROGRAM
     Route: 061
     Dates: start: 20141015, end: 20141015
  23. CIPROFLOXACIN. [Concomitant]
     Active Substance: CIPROFLOXACIN
     Indication: URINARY TRACT INFECTION
     Route: 048
     Dates: start: 20141009, end: 20141016
  24. PYRIDIUM [Concomitant]
     Active Substance: PHENAZOPYRIDINE
     Indication: URINARY TRACT INFECTION
     Route: 048
     Dates: start: 20141007, end: 20141016
  25. ABRAXANE [Suspect]
     Active Substance: PACLITAXEL
     Dosage: 175
     Route: 041
     Dates: start: 20141017

REACTIONS (1)
  - Pneumonia mycoplasmal [Recovered/Resolved]

NARRATIVE: CASE EVENT DATE: 20141028
